FAERS Safety Report 16668685 (Version 1)
Quarter: 2019Q3

REPORT INFORMATION
  Report Type: Spontaneous
  Country: US (occurrence: US)
  Receive Date: 20190804
  Receipt Date: 20190804
  Transmission Date: 20191004
  Serious: Yes (Disabling)
  Sender: FDA-Public Use
  Company Number: None

PATIENT
  Age: 84 Year
  Sex: Female
  Weight: 74.25 kg

DRUGS (15)
  1. ELIQUIS [Suspect]
     Active Substance: APIXABAN
     Indication: DEEP VEIN THROMBOSIS
     Dosage: ?          QUANTITY:1 TABLET(S);?
     Route: 048
     Dates: start: 20190531
  2. ACETAMINOPHEN. [Concomitant]
     Active Substance: ACETAMINOPHEN
  3. VITAMIN D3 [Concomitant]
     Active Substance: CHOLECALCIFEROL
  4. DILTIAZEM 120 MG; [Concomitant]
  5. LACTAID [Concomitant]
     Active Substance: LACTASE
  6. MAGNESIUM [Concomitant]
     Active Substance: MAGNESIUM
  7. ELIQUIS [Concomitant]
     Active Substance: APIXABAN
  8. ZINC GLUCONATE: 50 MG DAILY. [Concomitant]
  9. RANITIDINE 150 MG [Concomitant]
     Active Substance: RANITIDINE
  10. ASPIRIN. [Concomitant]
     Active Substance: ASPIRIN
  11. CRAMBERRY [Concomitant]
  12. MELATONIN [Concomitant]
     Active Substance: MELATONIN
  13. CHLORTHALIDONE 25 MG [Concomitant]
     Active Substance: CHLORTHALIDONE
  14. FISH OIL CONCENTRATE: [Concomitant]
  15. MULTIVITAMIN/MULTIMINERAL [Concomitant]
     Active Substance: MINERALS\VITAMINS

REACTIONS (3)
  - Deep vein thrombosis [None]
  - Paraesthesia [None]
  - Tremor [None]

NARRATIVE: CASE EVENT DATE: 20190615
